FAERS Safety Report 16816788 (Version 1)
Quarter: 2019Q3

REPORT INFORMATION
  Report Type: Spontaneous
  Country: US (occurrence: US)
  Receive Date: 20190917
  Receipt Date: 20190917
  Transmission Date: 20191005
  Serious: No
  Sender: FDA-Public Use
  Company Number: US-RECKITT BENCKISER HEALTHCARE INT LIMITED-RB-92991-2018

PATIENT
  Age: 67 Year
  Sex: Female
  Weight: 48.07 kg

DRUGS (1)
  1. MUCINEX [Suspect]
     Active Substance: GUAIFENESIN
     Indication: SINUSITIS
     Dosage: 600 MILLIGRAM, SINGLE
     Route: 065
     Dates: start: 20181024

REACTIONS (2)
  - Myalgia [Not Recovered/Not Resolved]
  - Skin burning sensation [Not Recovered/Not Resolved]

NARRATIVE: CASE EVENT DATE: 20181025
